FAERS Safety Report 10304712 (Version 1)
Quarter: 2014Q3

REPORT INFORMATION
  Report Type: Spontaneous
  Country: US (occurrence: None)
  Receive Date: 20140710
  Receipt Date: 20140710
  Transmission Date: 20150326
  Serious: Yes (Disabling)
  Sender: FDA-Public Use
  Company Number: None

PATIENT
  Age: 67 Year
  Sex: Female
  Weight: 80.74 kg

DRUGS (1)
  1. EMSAM [Suspect]
     Active Substance: SELEGILINE
     Indication: DEPRESSION
     Dosage: 1 TRANSDERMAL PATCH DAY  ONCE DAILY  APPLIED AS MEDICATED PATCH TO SKIN
     Route: 062
     Dates: start: 20140703, end: 20140709

REACTIONS (4)
  - Disease recurrence [None]
  - Depression [None]
  - Drug ineffective [None]
  - Product adhesion issue [None]

NARRATIVE: CASE EVENT DATE: 20140708
